FAERS Safety Report 15291515 (Version 1)
Quarter: 2018Q3

REPORT INFORMATION
  Report Type: Report from Study
  Country: US (occurrence: US)
  Receive Date: 20180817
  Receipt Date: 20180817
  Transmission Date: 20181010
  Serious: Yes (Hospitalization)
  Sender: FDA-Public Use
  Company Number: US-ACTELION-A-US2018-174314

PATIENT
  Age: 67 Year
  Sex: Male

DRUGS (4)
  1. FLOLAN [Concomitant]
     Active Substance: EPOPROSTENOL SODIUM
     Dosage: UNK
     Route: 042
  2. O2 [Concomitant]
     Active Substance: OXYGEN
     Dosage: 2?4 L, UNK
  3. TADALAFIL [Concomitant]
     Active Substance: TADALAFIL
     Dosage: UNK UNK, QD
  4. OPSUMIT [Suspect]
     Active Substance: MACITENTAN
     Indication: PULMONARY ARTERIAL HYPERTENSION
     Dosage: 10 MG, QD
     Route: 048
     Dates: start: 20160216

REACTIONS (9)
  - Palpitations [Unknown]
  - Renal impairment [Recovering/Resolving]
  - Right ventricular failure [Unknown]
  - Fluid overload [Recovering/Resolving]
  - Acute kidney injury [Recovering/Resolving]
  - Condition aggravated [Unknown]
  - Oxygen consumption increased [Unknown]
  - Exercise tolerance decreased [Unknown]
  - Transplant evaluation [Unknown]

NARRATIVE: CASE EVENT DATE: 201712
